FAERS Safety Report 5401337-X (Version None)
Quarter: 2007Q3

REPORT INFORMATION
  Report Type: 
  Country: None (occurrence: None)
  Receive Date: 20070731
  Receipt Date: 20070723
  Transmission Date: 20080115
  Serious: Yes (Death)
  Sender: FDA-Public Use
  Company Number: A0618787A

PATIENT
  Age: 49 Year
  Sex: Male

DRUGS (3)
  1. ADVAIR DISKUS 100/50 [Suspect]
     Indication: DRUG USE FOR UNKNOWN INDICATION
     Dosage: 1PUFF TWICE PER DAY
     Route: 055
  2. HYZAAR [Concomitant]
  3. LORAZEPAM [Concomitant]

REACTIONS (6)
  - CARDIAC FAILURE [None]
  - CARDIOMYOPATHY [None]
  - DILATATION VENTRICULAR [None]
  - DYSPNOEA [None]
  - SNORING [None]
  - SOMNOLENCE [None]
